FAERS Safety Report 8652275 (Version 3)
Quarter: 2012Q4

REPORT INFORMATION
  Report Type: Spontaneous
  Country: US (occurrence: None)
  Receive Date: 20120619
  Receipt Date: 20120925
  Transmission Date: 20130627
  Serious: Yes (Hospitalization, Disabling, Other)
  Sender: FDA-Public Use
  Company Number: DSA_57901_2012

PATIENT
  Age: 30 Year
  Sex: Female
  Weight: 74.84 kg

DRUGS (9)
  1. MACUGEN [Suspect]
     Indication: DIABETIC RETINAL OEDEMA
     Dosage: (3 injections in right eye and 3 injections in the left eye)
     Route: 031
     Dates: start: 20080723, end: 20090622
  2. MACUGEN [Suspect]
     Indication: DIABETIC RETINAL OEDEMA
     Dosage: (DF INTRAOCULAR) ; (DF INTRAOCULAR) ; (DF INTRAOCULAR)
  3. MACUGEN [Suspect]
     Indication: DIABETIC RETINAL OEDEMA
     Dosage: (DF INTRAOCULAR) ; (DF INTRAOCULAR) ; (DF INTRAOCULAR)
  4. INSULIN [Concomitant]
  5. ASPIRIN [Concomitant]
  6. ACTOS [Concomitant]
  7. HUMALOG [Concomitant]
  8. TETRACAINE [Concomitant]
  9. POVIDINE-IODINE [Concomitant]

REACTIONS (8)
  - Cerebrovascular accident [None]
  - Off label use [None]
  - Aphasia [None]
  - Blindness unilateral [None]
  - Type 1 diabetes mellitus [None]
  - Renal transplant [None]
  - Hypertension [None]
  - Diabetic retinal oedema [None]
